FAERS Safety Report 10993702 (Version 1)
Quarter: 2015Q2

REPORT INFORMATION
  Report Type: Spontaneous
  Country: US (occurrence: None)
  Receive Date: 20150406
  Receipt Date: 20150406
  Transmission Date: 20150821
  Serious: No
  Sender: FDA-Public Use
  Company Number: None

PATIENT
  Age: 65 Year
  Sex: Male
  Weight: 81.65 kg

DRUGS (5)
  1. DILTIAZEN [Concomitant]
  2. LOSARTAN [Suspect]
     Active Substance: LOSARTAN
     Indication: HYPERTENSION
     Dosage: 1 TABLET ONCE DAILY TAKEN BY MOUTH
     Route: 048
  3. VITAMINS [Concomitant]
     Active Substance: VITAMINS
  4. LOSARTAN [Concomitant]
     Active Substance: LOSARTAN
  5. WARFARIN [Concomitant]
     Active Substance: WARFARIN

REACTIONS (2)
  - Hypotension [None]
  - Heart rate increased [None]

NARRATIVE: CASE EVENT DATE: 20150312
